FAERS Safety Report 7901057 (Version 6)
Quarter: 2012Q4

REPORT INFORMATION
  Report Type: Report from Study
  Country: JP (occurrence: JP)
  Receive Date: 20110415
  Receipt Date: 20120907
  Transmission Date: 20130627
  Serious: Yes (Death, Life-Threatening, Other)
  Sender: FDA-Public Use
  Company Number: JP-CELGENEUS-087-50794-11041475

PATIENT
  Age: 88 None
  Sex: Female
  Weight: 35 kg

DRUGS (15)
  1. VIDAZA [Suspect]
     Indication: MYELODYSPLASTIC SYNDROME
     Dosage: 75 microgram/sq. meter
     Route: 058
     Dates: start: 20110323, end: 20110329
  2. LYRICA [Concomitant]
     Indication: NUMBNESS OF FINGERS
     Dosage: 75 Milligram
     Route: 048
     Dates: start: 20110329, end: 20110330
  3. DIFLUCAN [Concomitant]
     Indication: DRUG USE FOR UNKNOWN INDICATION
     Dosage: 100 Milligram
     Route: 065
     Dates: start: 20110326, end: 20110330
  4. BAKTAR [Concomitant]
     Indication: DRUG USE FOR UNKNOWN INDICATION
     Dosage: 1 Dosage forms
     Route: 048
     Dates: start: 20110326, end: 20110330
  5. SIGMART [Concomitant]
     Indication: DRUG USE FOR UNKNOWN INDICATION
     Dosage: 15 Milligram
     Route: 048
  6. NORVASC [Concomitant]
     Indication: DRUG USE FOR UNKNOWN INDICATION
     Dosage: 2.5 Milligram
     Route: 048
  7. BLOPRESS [Concomitant]
     Indication: DRUG USE FOR UNKNOWN INDICATION
     Dosage: 1 Dosage forms
     Route: 048
  8. LASIX [Concomitant]
     Indication: DRUG USE FOR UNKNOWN INDICATION
     Dosage: 1 Dosage forms
     Route: 048
  9. FRANDOL [Concomitant]
     Indication: DRUG USE FOR UNKNOWN INDICATION
     Dosage: 1 Dosage forms
     Route: 065
  10. EXJADE [Concomitant]
     Indication: DRUG USE FOR UNKNOWN INDICATION
     Route: 065
  11. METHYCOBAL [Concomitant]
     Indication: DRUG USE FOR UNKNOWN INDICATION
     Dosage: 1500 Microgram
     Route: 065
  12. CYTOTEC [Concomitant]
     Indication: DRUG USE FOR UNKNOWN INDICATION
     Dosage: 600 Milligram
     Route: 048
  13. NEUTROGIN [Concomitant]
     Indication: DRUG USE FOR UNKNOWN INDICATION
     Dosage: 100 Microgram
     Route: 058
     Dates: start: 20110401, end: 20110406
  14. MAXIPIME [Concomitant]
     Indication: DRUG USE FOR UNKNOWN INDICATION
     Dosage: 4 Gram
     Route: 041
     Dates: start: 20110402, end: 20110406
  15. MEROPEN [Concomitant]
     Indication: DRUG USE FOR UNKNOWN INDICATION
     Dosage: 3 Gram
     Route: 041
     Dates: start: 20110404, end: 20110406

REACTIONS (3)
  - Hepatitis acute [Fatal]
  - Pneumonia [Fatal]
  - Malaise [Unknown]
